FAERS Safety Report 20052374 (Version 4)
Quarter: 2022Q1

REPORT INFORMATION
  Report Type: Spontaneous
  Country: US (occurrence: US)
  Receive Date: 20211110
  Receipt Date: 20220210
  Transmission Date: 20220423
  Serious: Yes (Hospitalization, Other)
  Sender: FDA-Public Use
  Company Number: US-BIOVITRUM-2021US9979

PATIENT
  Sex: Female

DRUGS (2)
  1. SYNAGIS [Suspect]
     Active Substance: PALIVIZUMAB
     Indication: Antiviral prophylaxis
     Dosage: (50MG/0.5ML), (100MG/ML)
     Route: 030
     Dates: start: 202107
  2. SYNAGIS [Suspect]
     Active Substance: PALIVIZUMAB
     Route: 030

REACTIONS (3)
  - Pneumonia [Unknown]
  - Vomiting [Unknown]
  - Pleural effusion [Unknown]
